FAERS Safety Report 16367269 (Version 1)
Quarter: 2019Q2

REPORT INFORMATION
  Report Type: Spontaneous
  Country: US (occurrence: US)
  Receive Date: 20190529
  Receipt Date: 20190529
  Transmission Date: 20190711
  Serious: No
  Sender: FDA-Public Use
  Company Number: US-GLAXOSMITHKLINE-US2019094182

PATIENT
  Age: 39 Year
  Sex: Female

DRUGS (2)
  1. ABREVA [Suspect]
     Active Substance: DOCOSANOL
     Indication: ORAL HERPES
     Dosage: 5 TIMES A DAY
     Route: 061
  2. ABREVA [Suspect]
     Active Substance: DOCOSANOL
     Dosage: 5 TIMES A DAY

REACTIONS (2)
  - Condition aggravated [Recovering/Resolving]
  - Oral herpes [Recovering/Resolving]
